FAERS Safety Report 5350545-5 (Version None)
Quarter: 2007Q2

REPORT INFORMATION
  Report Type: 
  Country: None (occurrence: None)
  Receive Date: 20070608
  Receipt Date: 20070607
  Transmission Date: 20071010
  Serious: Yes (Life-Threatening)
  Sender: FDA-Public Use
  Company Number: ES-BRISTOL-MYERS SQUIBB COMPANY-13806484

PATIENT
  Age: 48 Year
  Sex: Male

DRUGS (1)
  1. LIPLAT [Suspect]
     Indication: HYPERLIPIDAEMIA
     Route: 048
     Dates: start: 20051212, end: 20061223

REACTIONS (1)
  - SUPRAVENTRICULAR TACHYCARDIA [None]
